FAERS Safety Report 7712626-8 (Version None)
Quarter: 2011Q3

REPORT INFORMATION
  Report Type: 
  Country: None (occurrence: None)
  Receive Date: 20110826
  Receipt Date: 20110812
  Transmission Date: 20111222
  Serious: Yes (Other)
  Sender: FDA-Public Use
  Company Number: US-JNJFOC-20110808669

PATIENT
  Age: 55 Year
  Sex: Female
  Weight: 88.45 kg

DRUGS (5)
  1. NEOSPORIN [Suspect]
     Indication: PROPHYLAXIS
     Dosage: A THIN LAYER, ONCE OR TWICE
     Route: 048
     Dates: start: 20110805
  2. NEOSPORIN [Suspect]
     Dosage: A THIN LAYER, ONCE OR TWICE
     Route: 048
     Dates: start: 20110805
  3. CLARITIN [Concomitant]
     Indication: SEASONAL ALLERGY
     Route: 065
  4. ZYRTEC [Concomitant]
     Indication: SEASONAL ALLERGY
     Route: 065
  5. BENADRYL [Concomitant]
     Indication: SEASONAL ALLERGY
     Route: 065

REACTIONS (4)
  - LIP BLISTER [None]
  - BURNING SENSATION [None]
  - LIP SWELLING [None]
  - LIP EXFOLIATION [None]
